FAERS Safety Report 5409376-X (Version None)
Quarter: 2007Q3

REPORT INFORMATION
  Report Type: 
  Country: None (occurrence: None)
  Receive Date: 20070807
  Receipt Date: 20070727
  Transmission Date: 20080115
  Serious: Yes (Death)
  Sender: FDA-Public Use
  Company Number: GXKR2007JP06119

PATIENT
  Age: 21 Year
  Sex: 0
  Weight: 53.4 kg

DRUGS (1)
  1. DIPHENHYDRAMINE HCL [Suspect]
     Indication: MEDICATION ERROR

REACTIONS (6)
  - COMPLETED SUICIDE [None]
  - DRUG TOXICITY [None]
  - INTENTIONAL OVERDOSE [None]
  - PULMONARY CONGESTION [None]
  - PULMONARY OEDEMA [None]
  - SHOCK [None]
